FAERS Safety Report 13451910 (Version 1)
Quarter: 2017Q2

REPORT INFORMATION
  Report Type: Report from Study
  Country: DK (occurrence: DK)
  Receive Date: 20170418
  Receipt Date: 20170418
  Transmission Date: 20170830
  Serious: Yes (Other)
  Sender: FDA-Public Use
  Company Number: DK-MYLANLABS-2016M1046703

PATIENT

DRUGS (3)
  1. ARIPIPRAZOLE. [Suspect]
     Active Substance: ARIPIPRAZOLE
     Indication: AUTISM SPECTRUM DISORDER
     Dosage: 1 MG/ML
     Route: 048
     Dates: start: 20120718
  2. ARIPIPRAZOLE. [Suspect]
     Active Substance: ARIPIPRAZOLE
     Dosage: 2MG/ML
     Dates: start: 20120725
  3. SERTRALINE [Suspect]
     Active Substance: SERTRALINE HYDROCHLORIDE
     Indication: PRODUCT USED FOR UNKNOWN INDICATION
     Dosage: 150MG ABOUT 8 WEEKS, MORE THAN 100MG SINCE ABOUT 1ST JUNE
     Route: 065

REACTIONS (6)
  - Product use in unapproved indication [Unknown]
  - Dizziness [Unknown]
  - Orthostatic hypotension [Unknown]
  - Balance disorder [Unknown]
  - Malaise [Unknown]
  - Anxiety [Unknown]
